FAERS Safety Report 19250584 (Version 1)
Quarter: 2021Q2

REPORT INFORMATION
  Report Type: Spontaneous
  Country: ES (occurrence: ES)
  Receive Date: 20210512
  Receipt Date: 20210512
  Transmission Date: 20210717
  Serious: Yes (Death, Hospitalization)
  Sender: FDA-Public Use
  Company Number: NVSC2021ES106259

PATIENT
  Age: 77 Year
  Sex: Female

DRUGS (2)
  1. TOFRANIL [Interacting]
     Active Substance: IMIPRAMINE HYDROCHLORIDE
     Indication: SUICIDE ATTEMPT
     Dosage: UNK
     Route: 048
     Dates: start: 20210411, end: 20210411
  2. ALPRAZOLAM. [Suspect]
     Active Substance: ALPRAZOLAM
     Indication: SUICIDE ATTEMPT
     Dosage: UNK
     Route: 048
     Dates: start: 20210411, end: 20210411

REACTIONS (4)
  - Cardio-respiratory arrest [Fatal]
  - Ischaemic hepatitis [Fatal]
  - Acute kidney injury [Fatal]
  - Hypoxic-ischaemic encephalopathy [Fatal]

NARRATIVE: CASE EVENT DATE: 20210411
